FAERS Safety Report 7807811-0 (Version None)
Quarter: 2011Q4

REPORT INFORMATION
  Report Type: 
  Country: None (occurrence: None)
  Receive Date: 20111011
  Receipt Date: 20111003
  Transmission Date: 20120403
  Serious: Yes (Hospitalization, Other)
  Sender: FDA-Public Use
  Company Number: JP-CEPHALON-2011004047

PATIENT
  Sex: Male
  Weight: 47 kg

DRUGS (8)
  1. BENDAMUSTINE HCL [Suspect]
     Route: 042
     Dates: start: 20110517, end: 20110518
  2. LAFUTIDINE [Concomitant]
  3. PREDNISOLONE [Concomitant]
     Dates: start: 20100907
  4. SULFAMETHOXAZOLE AND TRIMETHOPRIM [Concomitant]
     Dates: start: 20100907
  5. FUROSEMIDE [Concomitant]
  6. TRAMADOL HCL [Concomitant]
     Dates: start: 20110222
  7. BENDAMUSTINE HCL [Suspect]
     Indication: SPLENIC MARGINAL ZONE LYMPHOMA
     Route: 042
     Dates: start: 20110224, end: 20110225
  8. BENDAMUSTINE HCL [Suspect]
     Route: 042
     Dates: start: 20110317, end: 20110318

REACTIONS (6)
  - C-REACTIVE PROTEIN INCREASED [None]
  - WHITE BLOOD CELL COUNT DECREASED [None]
  - NAUSEA [None]
  - VARICELLA [None]
  - NEUTROPHIL COUNT DECREASED [None]
  - DECREASED APPETITE [None]
